FAERS Safety Report 9977550 (Version 1)
Quarter: 2014Q1

REPORT INFORMATION
  Report Type: Report from Study
  Country: US (occurrence: US)
  Receive Date: 20140306
  Receipt Date: 20140306
  Transmission Date: 20141002
  Serious: No
  Sender: FDA-Public Use
  Company Number: US-ABBVIE-13P-163-1162765-00

PATIENT
  Age: 79 Year
  Sex: Female

DRUGS (10)
  1. HUMIRA [Suspect]
     Indication: CROHN^S DISEASE
     Dates: start: 20130226
  2. LEVOTHYROXINE [Concomitant]
     Indication: HYPOTHYROIDISM
  3. LOSARTAN [Concomitant]
     Indication: HYPERTENSION
     Dosage: 100/12.5MG DAILY
  4. PENTASA [Concomitant]
     Indication: CROHN^S DISEASE
  5. OMEPRAZOLE [Concomitant]
     Indication: DYSPEPSIA
  6. LOPERAMIDE [Concomitant]
     Indication: DIARRHOEA
  7. CALCIUM [Concomitant]
     Indication: MINERAL SUPPLEMENTATION
     Dosage: DAILY
  8. VITAMINS [Concomitant]
     Indication: BONE DISORDER
     Dosage: DAILY
  9. VITAMINS [Concomitant]
     Indication: VITAMIN SUPPLEMENTATION
  10. COSAMINE [Concomitant]
     Indication: BONE DISORDER
     Dosage: DAILY

REACTIONS (1)
  - Injection site haemorrhage [Recovered/Resolved]
